FAERS Safety Report 8536576-2 (Version None)
Quarter: 2012Q3

REPORT INFORMATION
  Report Type: 
  Country: None (occurrence: None)
  Receive Date: 20120725
  Receipt Date: 20120705
  Transmission Date: 20120928
  Serious: Yes (Death, Hospitalization)
  Sender: FDA-Public Use
  Company Number: US-009507513-2012SP031889

PATIENT

DRUGS (8)
  1. LISINOPRIL [Concomitant]
  2. REBETOL [Suspect]
     Indication: HEPATITIS C
  3. ONDANSETRON [Concomitant]
  4. EFFEXOR [Concomitant]
  5. SYNTHROID [Concomitant]
  6. PAXIL [Concomitant]
  7. TRANXENE [Concomitant]
  8. PEG-INTRON [Suspect]
     Indication: HEPATITIS C
     Dosage: 120 MICROGRAMS, QW
     Dates: start: 20120501

REACTIONS (5)
  - BLOOD PRESSURE DECREASED [None]
  - DYSPNOEA [None]
  - SYNCOPE [None]
  - ASTHENIA [None]
  - WRONG TECHNIQUE IN DRUG USAGE PROCESS [None]
